FAERS Safety Report 7736473-6 (Version None)
Quarter: 2011Q3

REPORT INFORMATION
  Report Type: 
  Country: None (occurrence: None)
  Receive Date: 20110817
  Receipt Date: 20110225
  Transmission Date: 20111222
  Serious: Yes (Other)
  Sender: FDA-Public Use
  Company Number: 20109778

PATIENT
  Age: 22 Year
  Sex: Male

DRUGS (1)
  1. LIORESAL [Suspect]
     Indication: MUSCLE SPASTICITY
     Dosage: SEE B5 MCG, DAILY, INTRATHECAL

REACTIONS (4)
  - CONDITION AGGRAVATED [None]
  - MUSCLE SPASTICITY [None]
  - DRUG WITHDRAWAL SYNDROME [None]
  - INFECTION [None]
